FAERS Safety Report 4277549-8 (Version None)
Quarter: 2004Q1

REPORT INFORMATION
  Report Type: 
  Country: None (occurrence: None)
  Receive Date: 20040121
  Receipt Date: 20040105
  Transmission Date: 20041129
  Serious: Yes (Hospitalization, Disabling, Other)
  Sender: FDA-Public Use
  Company Number: USA040155773

PATIENT
  Sex: Male

DRUGS (2)
  1. HUMULIN 70/30 [Suspect]
  2. NOVOLIN (INSULIN HUMAN INJECTION, ISOPHANE) [Concomitant]

REACTIONS (6)
  - BLOOD BLISTER [None]
  - FALL [None]
  - LEG AMPUTATION [None]
  - MUSCLE ATROPHY [None]
  - POOR PERIPHERAL CIRCULATION [None]
  - RIB FRACTURE [None]
